FAERS Safety Report 9607663 (Version 1)
Quarter: 2013Q4

REPORT INFORMATION
  Report Type: Spontaneous
  Country: US (occurrence: US)
  Receive Date: 20131009
  Receipt Date: 20131009
  Transmission Date: 20140711
  Serious: No
  Sender: FDA-Public Use
  Company Number: US-SANOFI-AVENTIS-2013SA026155

PATIENT
  Sex: Female

DRUGS (9)
  1. ARAVA [Suspect]
  2. DICLOFENAC SODIUM [Interacting]
     Indication: RHEUMATOID ARTHRITIS
     Dosage: 1 TABLET BID PO
     Route: 048
     Dates: start: 20130131, end: 20130131
  3. DICLOFENAC SODIUM [Interacting]
     Indication: RHEUMATOID ARTHRITIS
     Dosage: 2 TABLET BID PO
     Route: 048
     Dates: start: 20130201, end: 20130201
  4. DICLOFENAC SODIUM [Interacting]
     Indication: RHEUMATOID ARTHRITIS
     Dosage: 1 TABLET QD AM PO
     Route: 048
     Dates: start: 20130202, end: 20130202
  5. LYRICA [Suspect]
  6. PREDNISON [Suspect]
  7. TRAMADOL [Suspect]
  8. ULTRACET [Suspect]
  9. CEPHALEXIN [Suspect]
     Indication: INFECTION

REACTIONS (5)
  - Feeling hot [Recovering/Resolving]
  - Skin exfoliation [Recovering/Resolving]
  - Erythema [Recovering/Resolving]
  - Local swelling [Recovering/Resolving]
  - Drug interaction [Unknown]
